FAERS Safety Report 5601551-4 (Version None)
Quarter: 2008Q1

REPORT INFORMATION
  Report Type: 
  Country: None (occurrence: None)
  Receive Date: 20080124
  Receipt Date: 20080118
  Transmission Date: 20080703
  Serious: Yes (Life-Threatening)
  Sender: FDA-Public Use
  Company Number: JP-ASTRAZENECA-2007AP07995

PATIENT
  Age: 83 Year
  Sex: Male

DRUGS (4)
  1. CASODEX [Suspect]
     Indication: PROSTATE CANCER
     Route: 048
     Dates: start: 20040202, end: 20071026
  2. ZOLADEX [Suspect]
     Indication: PROSTATE CANCER
     Route: 058
     Dates: start: 20040216, end: 20070101
  3. DETRUSITOL [Suspect]
     Route: 048
     Dates: start: 20060101, end: 20071026
  4. AMLODIPINE BESYLATE [Concomitant]
     Route: 048
     Dates: start: 20070401, end: 20071026

REACTIONS (1)
  - INTERSTITIAL LUNG DISEASE [None]
